FAERS Safety Report 11937267 (Version 1)
Quarter: 2016Q1

REPORT INFORMATION
  Report Type: Spontaneous
  Country: CA (occurrence: CA)
  Receive Date: 20160121
  Receipt Date: 20160121
  Transmission Date: 20160526
  Serious: Yes (Other)
  Sender: FDA-Public Use
  Company Number: CA-TEVA-627345ACC

PATIENT
  Age: 24 Year
  Sex: Female
  Weight: 53.57 kg

DRUGS (1)
  1. CEFAZOLIN FOR INJECTION [Suspect]
     Active Substance: CEFAZOLIN
     Indication: BRONCHIAL PROSTHESIS INSERTION
     Dosage: 2 G, ONCE
     Route: 042

REACTIONS (5)
  - Chest discomfort [Recovered/Resolved]
  - Paraesthesia [Recovered/Resolved]
  - Paraesthesia oral [Recovered/Resolved]
  - Dyspnoea [Recovered/Resolved]
  - Rash macular [Recovered/Resolved]
